FAERS Safety Report 17828121 (Version 3)
Quarter: 2020Q3

REPORT INFORMATION
  Report Type: Spontaneous
  Country: CA (occurrence: CA)
  Receive Date: 20200527
  Receipt Date: 20200728
  Transmission Date: 20201102
  Serious: Yes (Death, Life-Threatening, Hospitalization, Other)
  Sender: FDA-Public Use
  Company Number: CA-009507513-2005CAN007395

PATIENT
  Sex: Female

DRUGS (27)
  1. AMPICILLIN [Suspect]
     Active Substance: AMPICILLIN
     Indication: EVIDENCE BASED TREATMENT
     Dosage: 50 MG/KG, 2 EVERY 1 DAYS; DOSAGE FORM NOT SPECIFIED
     Route: 042
  2. AMPICILLIN [Suspect]
     Active Substance: AMPICILLIN
     Indication: ANTIBIOTIC THERAPY
     Dosage: UNK
     Route: 064
  3. CEFOTAXIME SODIUM [Suspect]
     Active Substance: CEFOTAXIME SODIUM
     Indication: RENAL FAILURE
  4. MEROPENEM. [Suspect]
     Active Substance: MEROPENEM
     Indication: RESPIRATORY TRACT INFECTION
     Dosage: 20 MG/KG, 2 EVERY 1 DAYS, FORMULATION: POWDER FOR SOLUTION INTRAVENOUS
     Route: 065
  5. SULFAMETHOXAZOLE (+) TRIMETHOPRIM [Suspect]
     Active Substance: SULFAMETHOXAZOLE\TRIMETHOPRIM
     Indication: STENOTROPHOMONAS INFECTION
     Dosage: 1 MG/KG, 2 EVERY 1 DAYS
     Route: 065
  6. CEFOTAXIME SODIUM [Suspect]
     Active Substance: CEFOTAXIME SODIUM
     Indication: EVIDENCE BASED TREATMENT
     Dosage: 50 MG/KG, 2 EVERY 1 DAYS
     Route: 042
  7. ERYTHROMYCIN. [Suspect]
     Active Substance: ERYTHROMYCIN
     Indication: PRODUCT USED FOR UNKNOWN INDICATION
     Dosage: UNK, DOSAGE FORM NOT SPECIFIED
     Route: 064
  8. AMPICILLIN [Suspect]
     Active Substance: AMPICILLIN
     Dosage: UNK
     Route: 065
  9. CEFOTAXIME SODIUM [Suspect]
     Active Substance: CEFOTAXIME SODIUM
     Indication: ANTIBIOTIC THERAPY
  10. CEFOTAXIME SODIUM [Suspect]
     Active Substance: CEFOTAXIME SODIUM
     Indication: EVIDENCE BASED TREATMENT
     Dosage: 50 MG/KG, 4 EVERY 1 DAYS
     Route: 065
  11. LEVOFLOXACIN. [Suspect]
     Active Substance: LEVOFLOXACIN
     Dosage: 10 MG/KG, 2 EVERY 1 DAYS. DOSAGE FORM NOT SPECIFIED.
     Route: 048
  12. VANCOMYCIN HYDROCHLORIDE. [Suspect]
     Active Substance: VANCOMYCIN HYDROCHLORIDE
     Indication: EVIDENCE BASED TREATMENT
     Dosage: 15 MG/KG, 1 EVERY 1 DAYS
     Route: 042
  13. AMPICILLIN [Suspect]
     Active Substance: AMPICILLIN
     Indication: ANTIBIOTIC THERAPY
     Dosage: 50 MG/KG, 2 EVERY 1 DAYS; DOSAGE FORM NOT SPECIFIED
     Route: 064
  14. AMPICILLIN [Suspect]
     Active Substance: AMPICILLIN
     Indication: EVIDENCE BASED TREATMENT
     Dosage: UNK
     Route: 065
  15. CEFOTAXIME SODIUM [Suspect]
     Active Substance: CEFOTAXIME SODIUM
     Indication: ANTIBIOTIC THERAPY
     Dosage: 50 MG/KG, 4 EVERY 1 DAYS
     Route: 064
  16. GENTAMICIN SULFATE. [Suspect]
     Active Substance: GENTAMICIN SULFATE
     Indication: EVIDENCE BASED TREATMENT
     Dosage: 5 MG/KG, UNK
     Route: 042
  17. VANCOMYCIN HYDROCHLORIDE. [Suspect]
     Active Substance: VANCOMYCIN HYDROCHLORIDE
     Indication: ANTIBIOTIC THERAPY
     Dosage: 15 MILLIGRAM, 1 EVERY 1 DAYS
     Route: 065
  18. CEFOTAXIME SODIUM [Suspect]
     Active Substance: CEFOTAXIME SODIUM
     Indication: RENAL FAILURE
  19. GENTAMICIN SULFATE. [Suspect]
     Active Substance: GENTAMICIN SULFATE
     Indication: ANTIBIOTIC THERAPY
  20. LEVOFLOXACIN. [Suspect]
     Active Substance: LEVOFLOXACIN
     Indication: STENOTROPHOMONAS INFECTION
     Dosage: 1 MG/KG
     Route: 048
  21. AMOXICILLIN. [Suspect]
     Active Substance: AMOXICILLIN
     Indication: PRODUCT USED FOR UNKNOWN INDICATION
     Dosage: UNK, DOSAGE FORM: NOT SPECIFIED
     Route: 064
  22. AMPICILLIN SODIUM. [Suspect]
     Active Substance: AMPICILLIN SODIUM
     Indication: PRODUCT USED FOR UNKNOWN INDICATION
     Route: 064
  23. AMPICILLIN SODIUM. [Suspect]
     Active Substance: AMPICILLIN SODIUM
     Dosage: 50 MG/KG, 2 EVERY 1 DAYS
     Route: 064
  24. SULFAMETHOXAZOLE (+) TRIMETHOPRIM [Suspect]
     Active Substance: SULFAMETHOXAZOLE\TRIMETHOPRIM
     Dosage: 5 MG/KG, 4 EVERY 1 DAYS
     Route: 065
  25. DIPROSONE [Suspect]
     Active Substance: BETAMETHASONE DIPROPIONATE
     Indication: PRODUCT USED FOR UNKNOWN INDICATION
     Dosage: UNK, DOSAGE FORM: NOT SPECIFIED
     Route: 064
  26. GENTAMICIN SULFATE. [Suspect]
     Active Substance: GENTAMICIN SULFATE
     Indication: EVIDENCE BASED TREATMENT
     Route: 065
  27. GENTAMICIN SULFATE. [Suspect]
     Active Substance: GENTAMICIN SULFATE
     Indication: ANTIBIOTIC THERAPY

REACTIONS (14)
  - Hypotonia neonatal [Fatal]
  - Pneumonia bacterial [Fatal]
  - Umbilical erythema [Fatal]
  - Renal impairment neonatal [Fatal]
  - Pneumonia [Fatal]
  - Renal failure [Fatal]
  - Stenotrophomonas infection [Fatal]
  - Death neonatal [Fatal]
  - Respiratory disorder [Fatal]
  - Respiratory disorder neonatal [Fatal]
  - Premature baby [Fatal]
  - Lethargy [Fatal]
  - Sepsis [Fatal]
  - Foetal exposure during pregnancy [Fatal]
